FAERS Safety Report 4809685-9 (Version None)
Quarter: 2005Q4

REPORT INFORMATION
  Report Type: 
  Country: None (occurrence: None)
  Receive Date: 20051021
  Receipt Date: 20030813
  Transmission Date: 20060501
  Serious: No
  Sender: FDA-Public Use
  Company Number: USA030844188

PATIENT
  Age: 82 Year
  Sex: Female

DRUGS (4)
  1. ZYPREXA [Suspect]
     Dosage: 5MG/DAY
  2. WELLBUTRIN [Concomitant]
  3. ASPIRIN [Concomitant]
  4. METHIMAZOLE [Concomitant]

REACTIONS (4)
  - BLOOD CHLORIDE DECREASED [None]
  - BLOOD CREATININE DECREASED [None]
  - HYPONATRAEMIA [None]
  - RED BLOOD CELL COUNT DECREASED [None]
